FAERS Safety Report 8319712 (Version 2)
Quarter: 2012Q4

REPORT INFORMATION
  Report Type: 
  Country: US (occurrence: US)
  Receive Date: 20120103
  Receipt Date: 20121009
  Transmission Date: 20130627
  Serious: No
  Sender: FDA-Public Use
  Company Number: US-US-EMD SERONO, INC.-7103900

PATIENT
  Age: 44 None
  Sex: Male

DRUGS (3)
  1. REBIF [Suspect]
     Indication: PRODUCT USED FOR UNKNOWN INDICATION
     Route: 058
     Dates: start: 20110917, end: 201112
  2. REBIF [Suspect]
     Route: 058
     Dates: start: 20111219, end: 20111221
  3. REBIF [Suspect]
     Route: 058
     Dates: start: 20111223

REACTIONS (2)
  - Hepatic enzyme increased [Unknown]
  - Injection site pain [Unknown]
